FAERS Safety Report 7177819-X (Version None)
Quarter: 2010Q4

REPORT INFORMATION
  Report Type: 
  Country: None (occurrence: None)
  Receive Date: 20101220
  Receipt Date: 20101215
  Transmission Date: 20110411
  Serious: Yes (Death, Hospitalization, Other)
  Sender: FDA-Public Use
  Company Number: AU-ELI_LILLY_AND_COMPANY-AU201011006633

PATIENT
  Sex: Female

DRUGS (15)
  1. GEMCITABINE HCL [Suspect]
     Indication: PANCREATIC CARCINOMA
     Dosage: 1000 MG/M2, UNKNOWN
     Route: 065
     Dates: start: 20101029
  2. PACLITAXEL [Suspect]
     Indication: PANCREATIC CARCINOMA
     Dosage: 125 MG/M2, WEEKLY (1/W)
     Route: 065
     Dates: start: 20101029
  3. ENOXAPARIN SODIUM [Concomitant]
     Indication: PROPHYLAXIS
     Dosage: UNK, UNK
     Route: 058
     Dates: start: 20100914
  4. CANDESARTAN CILEXETIL [Concomitant]
     Indication: HYPERTENSION
     Route: 048
     Dates: start: 20100801
  5. NIFEDIPINE [Concomitant]
     Indication: HYPERTENSION
     Route: 048
     Dates: start: 20100801
  6. METFORMIN HYDROCHLORIDE [Concomitant]
     Indication: TYPE 2 DIABETES MELLITUS
     Dates: start: 20100801
  7. ALUMINUM HYDROXIDE GEL [Concomitant]
     Indication: DYSPEPSIA
     Route: 048
     Dates: start: 20100801
  8. PARACETAMOL [Concomitant]
     Indication: ABDOMINAL PAIN
     Route: 048
     Dates: start: 20100801
  9. DEXAMETHASONE [Concomitant]
     Indication: DECREASED APPETITE
     Route: 048
     Dates: start: 20100901
  10. CHOLECALCIFEROL [Concomitant]
     Indication: PROPHYLAXIS
     Route: 048
     Dates: start: 20051201
  11. CALCIUM CARBONATE [Concomitant]
     Indication: PROPHYLAXIS
     Route: 048
     Dates: start: 20050101
  12. METOCLOPRAMIDE [Concomitant]
     Indication: PROPHYLAXIS
     Route: 048
     Dates: start: 20101029
  13. BENZYDAMINE HYDROCHLORIDE [Concomitant]
     Indication: ORAL CANDIDIASIS
     Route: 048
     Dates: start: 20101112
  14. NYSTATIN [Concomitant]
     Indication: ORAL CANDIDIASIS
     Route: 048
     Dates: start: 20101112
  15. MAGNESIUM HYDROXIDE [Concomitant]
     Indication: DYSPEPSIA

REACTIONS (3)
  - DEHYDRATION [None]
  - FALL [None]
  - TRAUMATIC HAEMATOMA [None]
